FAERS Safety Report 6748257-6 (Version None)
Quarter: 2010Q2

REPORT INFORMATION
  Report Type: 
  Country: None (occurrence: None)
  Receive Date: 20100601
  Receipt Date: 20100520
  Transmission Date: 20101027
  Serious: No
  Sender: FDA-Public Use
  Company Number: US-BIOGENIDEC-2010BI017118

PATIENT
  Age: 45 Year
  Sex: Female

DRUGS (1)
  1. TYSABRI [Suspect]
     Indication: MULTIPLE SCLEROSIS
     Route: 042
     Dates: start: 20090130

REACTIONS (7)
  - COUGH [None]
  - DYSGEUSIA [None]
  - EAR PAIN [None]
  - INFECTIOUS MONONUCLEOSIS [None]
  - LYME DISEASE [None]
  - TONSILLITIS [None]
  - ULCER [None]
